FAERS Safety Report 8132611-4 (Version None)
Quarter: 2012Q1

REPORT INFORMATION
  Report Type: 
  Country: None (occurrence: None)
  Receive Date: 20120213
  Receipt Date: 20120207
  Transmission Date: 20120608
  Serious: Yes (Hospitalization)
  Sender: FDA-Public Use
  Company Number: US-GLAXOSMITHKLINE-A0915608A

PATIENT
  Age: 64 Year
  Sex: Male

DRUGS (1)
  1. AVANDIA [Suspect]
     Indication: DIABETES MELLITUS
     Route: 048
     Dates: start: 20020201, end: 20071201

REACTIONS (5)
  - STENT PLACEMENT [None]
  - ANGIOPLASTY [None]
  - CARDIAC DISORDER [None]
  - CORONARY ARTERY DISEASE [None]
  - CARDIOVASCULAR DISORDER [None]
